FAERS Safety Report 10520263 (Version 3)
Quarter: 2015Q3

REPORT INFORMATION
  Report Type: Report from Study
  Country: US (occurrence: US)
  Receive Date: 20141015
  Receipt Date: 20150807
  Transmission Date: 20151125
  Serious: Yes (Hospitalization, Other)
  Sender: FDA-Public Use
  Company Number: US-GLAXOSMITHKLINE-Z0016390D

PATIENT
  Age: 81 Year
  Sex: Male
  Weight: 82.4 kg

DRUGS (2)
  1. XANAX [Concomitant]
     Active Substance: ALPRAZOLAM
     Indication: ANXIETY
     Route: 048
     Dates: start: 20140306
  2. DABRAFENIB CAPSULE [Suspect]
     Active Substance: DABRAFENIB
     Indication: THYROID CANCER
     Dosage: 150 MG, BID
     Route: 048
     Dates: start: 20120202

REACTIONS (1)
  - Cardiac failure congestive [Recovered/Resolved]

NARRATIVE: CASE EVENT DATE: 20140509
